FAERS Safety Report 5477740-9 (Version None)
Quarter: 2007Q3

REPORT INFORMATION
  Report Type: 
  Country: None (occurrence: None)
  Receive Date: 20070831
  Receipt Date: 20070615
  Transmission Date: 20080115
  Serious: No
  Sender: FDA-Public Use
  Company Number: PHEH2007US08915

PATIENT
  Age: 11 Year
  Sex: Female
  Weight: 72 kg

DRUGS (2)
  1. EXJADE [Suspect]
     Indication: IRON OVERLOAD
     Dosage: 20 MG/KG, QD, ORAL; 30 MG/KG
     Route: 048
     Dates: start: 20060706, end: 20070109
  2. EXJADE [Suspect]
     Indication: IRON OVERLOAD
     Dosage: 20 MG/KG, QD, ORAL; 30 MG/KG
     Route: 048
     Dates: start: 20070110, end: 20070524

REACTIONS (2)
  - ALOPECIA [None]
  - TRICHORRHEXIS [None]
